FAERS Safety Report 9199714 (Version 4)
Quarter: 2014Q1

REPORT INFORMATION
  Report Type: Spontaneous
  Country: US (occurrence: US)
  Receive Date: 20130329
  Receipt Date: 20140117
  Transmission Date: 20141002
  Serious: Yes (Other)
  Sender: FDA-Public Use
  Company Number: US-PFIZER INC-2013097459

PATIENT
  Age: 60 Year
  Sex: Female

DRUGS (9)
  1. PREMARIN [Suspect]
     Dosage: 1.25 MG, 1X/DAY
  2. BYSTOLIC [Concomitant]
     Dosage: UNK
  3. FLEXERIL [Concomitant]
     Dosage: UNK
  4. OXYCONTIN [Concomitant]
     Dosage: UNK
  5. PERCOCET [Concomitant]
     Dosage: UNK
  6. CRESTOR [Concomitant]
     Dosage: UNK
  7. CLONIDINE [Concomitant]
     Dosage: UNK
  8. HYDROCHLOROTHIAZIDE [Concomitant]
     Dosage: UNK
  9. VASOTEC [Concomitant]
     Dosage: UNK

REACTIONS (1)
  - Uterine disorder [Unknown]
